FAERS Safety Report 18610897 (Version 1)
Quarter: 2020Q4

REPORT INFORMATION
  Report Type: Spontaneous
  Country: US (occurrence: US)
  Receive Date: 20201212
  Receipt Date: 20201212
  Transmission Date: 20210114
  Serious: Yes (Life-Threatening)
  Sender: FDA-Public Use
  Company Number: None

PATIENT
  Age: 54 Year
  Sex: Male
  Weight: 80.1 kg

DRUGS (1)
  1. KRYSTEXXA [Suspect]
     Active Substance: PEGLOTICASE
     Indication: GOUT
     Dosage: ?          OTHER FREQUENCY:EVERY 2 WEEKS;?
     Route: 042
     Dates: start: 20201114, end: 20201212

REACTIONS (8)
  - Throat irritation [None]
  - Pruritus [None]
  - Flushing [None]
  - Rash [None]
  - Infusion related reaction [None]
  - Abdominal pain [None]
  - Micturition urgency [None]
  - Nausea [None]

NARRATIVE: CASE EVENT DATE: 20201212
